FAERS Safety Report 24013921 (Version 1)
Quarter: 2024Q2

REPORT INFORMATION
  Report Type: Spontaneous
  Country: TW (occurrence: TW)
  Receive Date: 20240626
  Receipt Date: 20240626
  Transmission Date: 20240716
  Serious: Yes (Other)
  Sender: FDA-Public Use
  Company Number: TW-ASTELLAS-2024US017624

PATIENT
  Age: 40 Year
  Sex: Male
  Weight: 58 kg

DRUGS (12)
  1. PADCEV [Suspect]
     Active Substance: ENFORTUMAB VEDOTIN-EJFV
     Indication: Transitional cell carcinoma
     Dosage: UNK UNK, UNKNOWN FREQ.
     Route: 065
     Dates: start: 20220215, end: 20220621
  2. PADCEV [Suspect]
     Active Substance: ENFORTUMAB VEDOTIN-EJFV
     Dosage: UNK UNK, UNKNOWN FREQ. (C7D1)
     Route: 065
     Dates: start: 20220628
  3. PADCEV [Suspect]
     Active Substance: ENFORTUMAB VEDOTIN-EJFV
     Dosage: 1 MG/KG, UNKNOWN FREQ (C10D1).
     Route: 065
     Dates: start: 20220920, end: 202402
  4. PADCEV [Suspect]
     Active Substance: ENFORTUMAB VEDOTIN-EJFV
     Dosage: 1 MG/KG, UNKNOWN FREQ. (C12D8)
     Route: 065
     Dates: start: 20221108
  5. PADCEV [Suspect]
     Active Substance: ENFORTUMAB VEDOTIN-EJFV
     Dosage: 1 MG/KG, UNKNOWN FREQ (C27D1)
     Route: 065
     Dates: start: 20230926
  6. PADCEV [Suspect]
     Active Substance: ENFORTUMAB VEDOTIN-EJFV
     Dosage: 1 MG/KG, UNKNOWN FREQ (C34D1)
     Route: 065
     Dates: start: 20240219
  7. PADCEV [Suspect]
     Active Substance: ENFORTUMAB VEDOTIN-EJFV
     Dosage: 1 MG/KG, UNKNOWN FREQ (C35D1)
     Route: 065
     Dates: start: 20240312
  8. PADCEV [Suspect]
     Active Substance: ENFORTUMAB VEDOTIN-EJFV
     Dosage: 0.75 MG/KG, UNKNOWN FREQ (C36D1).
     Route: 065
  9. PADCEV [Suspect]
     Active Substance: ENFORTUMAB VEDOTIN-EJFV
     Dosage: 0.75 MG/KG, UNKNOWN FREQ (C39D1).
     Route: 065
     Dates: start: 20240603
  10. PEMBROLIZUMAB [Concomitant]
     Active Substance: PEMBROLIZUMAB
     Indication: Transitional cell carcinoma
     Dosage: UNK UNK, UNKNOWN FREQ.
     Route: 065
     Dates: start: 20220215, end: 20220621
  11. PEMBROLIZUMAB [Concomitant]
     Active Substance: PEMBROLIZUMAB
     Dosage: UNK UNK, UNKNOWN FREQ.
     Route: 065
     Dates: start: 20220628, end: 2022
  12. PEMBROLIZUMAB [Concomitant]
     Active Substance: PEMBROLIZUMAB
     Dosage: UNK UNK, UNKNOWN FREQ.
     Route: 065
     Dates: start: 20220920, end: 20240312

REACTIONS (14)
  - Muscle rupture [Recovering/Resolving]
  - Neuropathy peripheral [Unknown]
  - Rash vesicular [Unknown]
  - Angiolymphoid hyperplasia with eosinophilia [Unknown]
  - Blood glucose increased [Unknown]
  - Alopecia [Unknown]
  - Pruritus [Unknown]
  - Cough [Unknown]
  - Eosinophilia [Unknown]
  - Condition aggravated [Unknown]
  - Dermatitis [Unknown]
  - Therapy partial responder [Unknown]
  - Product use issue [Unknown]
  - Off label use [Unknown]

NARRATIVE: CASE EVENT DATE: 20220215
